FAERS Safety Report 5345154-8 (Version None)
Quarter: 2007Q2

REPORT INFORMATION
  Report Type: 
  Country: None (occurrence: None)
  Receive Date: 20070601
  Receipt Date: 20070601
  Transmission Date: 20071010
  Serious: Yes (Other)
  Sender: FDA-Public Use
  Company Number: None

PATIENT
  Age: 64 Year
  Sex: Male
  Weight: 54.4316 kg

DRUGS (1)
  1. BCG LIVE-INTRAVESICAL- 81MG/VIAL THERACYS PASTEUR SANOFI [Suspect]
     Indication: BLADDER CANCER
     Dosage: 81MG 1/WEEK INTRAVESICAL 1/WEEK X 5WKS, INTERUPTED
     Route: 043
     Dates: start: 20070301, end: 20070409

REACTIONS (4)
  - ABDOMINAL PAIN LOWER [None]
  - HAEMATURIA [None]
  - PAIN [None]
  - PROCTALGIA [None]
